FAERS Safety Report 9479013 (Version 3)
Quarter: 2013Q4

REPORT INFORMATION
  Report Type: Spontaneous
  Country: US (occurrence: US)
  Receive Date: 20130827
  Receipt Date: 20131007
  Transmission Date: 20140711
  Serious: Yes (Death)
  Sender: FDA-Public Use
  Company Number: US-MPIJNJ-2013MPI000128

PATIENT
  Age: 85 Year
  Sex: Male

DRUGS (1)
  1. VELCADE [Suspect]
     Indication: PLASMA CELL MYELOMA
     Dosage: 2 MG, ON DAYS 1, 4, 8 AND 11 EVERY 21 DAYS
     Route: 042
     Dates: start: 20130809, end: 20130809

REACTIONS (1)
  - Death [Fatal]
